FAERS Safety Report 9280035 (Version 1)
Quarter: 2013Q2

REPORT INFORMATION
  Report Type: Spontaneous
  Country: US (occurrence: None)
  Receive Date: 20130506
  Receipt Date: 20130506
  Transmission Date: 20140414
  Serious: No
  Sender: FDA-Public Use
  Company Number: None

PATIENT
  Age: 59 Year
  Sex: Female

DRUGS (4)
  1. METHYLPHENIDATE ER [Suspect]
     Indication: DYSTHYMIC DISORDER
     Dosage: 40MG QD PO
     Route: 048
     Dates: start: 20131126, end: 20130226
  2. METHYLPHENIDATE ER [Suspect]
     Indication: ATTENTION DEFICIT/HYPERACTIVITY DISORDER
     Dosage: 40MG QD PO
     Route: 048
     Dates: start: 20131126, end: 20130226
  3. METHYLPHENIDATE [Suspect]
     Indication: DYSTHYMIC DISORDER
     Dosage: 40 MG QD PO
     Route: 048
     Dates: start: 20131126, end: 20130226
  4. METHYLPHENIDATE [Suspect]
     Indication: ATTENTION DEFICIT/HYPERACTIVITY DISORDER
     Dosage: 40 MG QD PO
     Route: 048
     Dates: start: 20131126, end: 20130226

REACTIONS (2)
  - Depression [None]
  - Product substitution issue [None]
